FAERS Safety Report 12471849 (Version 1)
Quarter: 2016Q2

REPORT INFORMATION
  Report Type: Spontaneous
  Country: US (occurrence: None)
  Receive Date: 20160615
  Receipt Date: 20160615
  Transmission Date: 20160815
  Serious: Yes (Hospitalization)
  Sender: FDA-Public Use
  Company Number: None

PATIENT
  Age: 89 Year
  Sex: Female
  Weight: 83.5 kg

DRUGS (19)
  1. MOBIC [Suspect]
     Active Substance: MELOXICAM
     Indication: ATRIAL FIBRILLATION
     Route: 048
  2. GINSENG [Suspect]
     Active Substance: ASIAN GINSENG
  3. GLIPIZIDE. [Concomitant]
     Active Substance: GLIPIZIDE
  4. TAPAZOLE [Concomitant]
     Active Substance: METHIMAZOLE
  5. ASA [Suspect]
     Active Substance: ASPIRIN
  6. NAPROXEN. [Suspect]
     Active Substance: NAPROXEN
  7. ALBUTEROL. [Concomitant]
     Active Substance: ALBUTEROL
  8. HYGROTEN [Concomitant]
  9. FISH OIL [Concomitant]
     Active Substance: FISH OIL
  10. INSPRA [Concomitant]
     Active Substance: EPLERENONE
  11. DRISDOL [Concomitant]
     Active Substance: ERGOCALCIFEROL
  12. COZAAR [Concomitant]
     Active Substance: LOSARTAN POTASSIUM
  13. CRES [Concomitant]
  14. LANTUS [Concomitant]
     Active Substance: INSULIN GLARGINE
  15. PLAVIX [Suspect]
     Active Substance: CLOPIDOGREL BISULFATE
     Indication: ATRIAL FIBRILLATION
     Route: 048
  16. GINKGO [Suspect]
     Active Substance: GINKGO
  17. MULTAQ [Concomitant]
     Active Substance: DRONEDARONE
  18. TOPROL XL [Concomitant]
     Active Substance: METOPROLOL SUCCINATE
  19. PROTONIX [Concomitant]
     Active Substance: PANTOPRAZOLE SODIUM

REACTIONS (7)
  - Drug interaction [None]
  - Balance disorder [None]
  - Hemiparesis [None]
  - Aphasia [None]
  - Subdural haematoma [None]
  - Asthenia [None]
  - Mental status changes [None]

NARRATIVE: CASE EVENT DATE: 20150820
